FAERS Safety Report 4322618-7 (Version None)
Quarter: 2004Q1

REPORT INFORMATION
  Report Type: 
  Country: None (occurrence: None)
  Receive Date: 20040324
  Receipt Date: 20040322
  Transmission Date: 20041129
  Serious: Yes (Hospitalization)
  Sender: FDA-Public Use
  Company Number: WAES 0403DEU00137

PATIENT
  Age: 83 Year
  Sex: Female
  Weight: 80 kg

DRUGS (3)
  1. DOXYLAMINE SUCCINATE [Concomitant]
     Indication: SLEEP DISORDER
     Route: 048
     Dates: end: 20031009
  2. PROPIVERINE HYDROCHLORIDE [Concomitant]
     Indication: URINARY INCONTINENCE
     Route: 048
     Dates: end: 20031009
  3. VIOXX [Suspect]
     Indication: ARTHRALGIA
     Route: 048
     Dates: start: 20021001, end: 20021009

REACTIONS (2)
  - GASTRITIS [None]
  - MALLORY-WEISS SYNDROME [None]
